FAERS Safety Report 25697585 (Version 1)
Quarter: 2025Q3

REPORT INFORMATION
  Report Type: Report from Study
  Country: PR (occurrence: PR)
  Receive Date: 20250818
  Receipt Date: 20250818
  Transmission Date: 20251020
  Serious: Yes (Other)
  Sender: ABBVIE
  Company Number: PR-ABBVIE-6417690

PATIENT
  Age: 25 Year
  Sex: Female

DRUGS (1)
  1. RINVOQ [Suspect]
     Active Substance: UPADACITINIB
     Indication: Crohn^s disease
     Dosage: 1 PILL DAILY
     Route: 048
     Dates: start: 202305, end: 202312

REACTIONS (34)
  - Gangrene [Recovered/Resolved]
  - Unresponsive to stimuli [Unknown]
  - Blood blister [Recovered/Resolved]
  - Haemorrhage [Unknown]
  - Hypotension [Recovered/Resolved]
  - Unevaluable event [Unknown]
  - Chills [Recovered/Resolved]
  - Nasopharyngitis [Unknown]
  - Colectomy [Unknown]
  - Skin discolouration [Recovered/Resolved]
  - Feeling abnormal [Unknown]
  - Pyrexia [Recovered/Resolved]
  - Haemoglobin abnormal [Recovered/Resolved]
  - Intestinal perforation [Recovered/Resolved]
  - Renal function test abnormal [Recovered/Resolved]
  - Blood glucose decreased [Unknown]
  - Nausea [Unknown]
  - Device dislocation [Recovered/Resolved]
  - Postoperative thrombosis [Recovered/Resolved]
  - Disorientation [Unknown]
  - Skin discolouration [Recovered/Resolved]
  - Swelling [Recovered/Resolved]
  - Loss of consciousness [Unknown]
  - Vomiting [Unknown]
  - Asthenia [Unknown]
  - Fall [Unknown]
  - Dysstasia [Unknown]
  - Heart rate increased [Unknown]
  - Blister [Unknown]
  - Feeling cold [Unknown]
  - Tremor [Unknown]
  - Intestinal perforation [Unknown]
  - Renal failure [Recovered/Resolved]
  - Haemoglobin decreased [Recovered/Resolved]

NARRATIVE: CASE EVENT DATE: 20231201
